FAERS Safety Report 13238073 (Version 2)
Quarter: 2018Q4

REPORT INFORMATION
  Report Type: Report from Study
  Country: None (occurrence: DE)
  Receive Date: 20170216
  Receipt Date: 20181026
  Transmission Date: 20190204
  Serious: Yes (Other)
  Sender: FDA-Public Use
  Company Number: DE-ABBVIE-16K-062-1744291-00

PATIENT
  Sex: Female

DRUGS (1)
  1. HUMIRA [Suspect]
     Active Substance: ADALIMUMAB
     Indication: ANKYLOSING SPONDYLITIS
     Route: 058
     Dates: start: 20100707, end: 201701

REACTIONS (6)
  - Weight increased [Not Recovered/Not Resolved]
  - Vaginal disorder [Recovering/Resolving]
  - Haemorrhoids thrombosed [Not Recovered/Not Resolved]
  - Rash pruritic [Not Recovered/Not Resolved]
  - Breast mass [Unknown]
  - Rash macular [Not Recovered/Not Resolved]

NARRATIVE: CASE EVENT DATE: 2011
